FAERS Safety Report 20957143 (Version 1)
Quarter: 2022Q2

REPORT INFORMATION
  Report Type: Spontaneous
  Country: SE (occurrence: SE)
  Receive Date: 20220614
  Receipt Date: 20220614
  Transmission Date: 20220721
  Serious: Yes (Other)
  Sender: FDA-Public Use
  Company Number: SE-VER-202200006

PATIENT
  Age: 16 Year
  Sex: Female

DRUGS (6)
  1. TRIPTORELIN PAMOATE [Suspect]
     Active Substance: TRIPTORELIN PAMOATE
     Indication: Gender dysphoria
     Dosage: INJECTION
     Route: 065
     Dates: start: 20180629, end: 20210114
  2. TRIPTORELIN PAMOATE [Suspect]
     Active Substance: TRIPTORELIN PAMOATE
     Indication: Off label use
     Dosage: INJECTION
     Route: 065
     Dates: start: 20180629, end: 20210114
  3. ZOLOFT [Concomitant]
     Active Substance: SERTRALINE HYDROCHLORIDE
     Indication: Depression
     Route: 048
     Dates: start: 20180831, end: 202101
  4. CONCERTA [Concomitant]
     Active Substance: METHYLPHENIDATE HYDROCHLORIDE
     Indication: Attention deficit hyperactivity disorder
     Route: 048
     Dates: start: 20191011, end: 2020
  5. LISDEXAMFETAMINE DIMESYLATE [Concomitant]
     Active Substance: LISDEXAMFETAMINE DIMESYLATE
     Indication: Attention deficit hyperactivity disorder
     Route: 048
     Dates: start: 2020
  6. MELATONIN [Concomitant]
     Active Substance: MELATONIN
     Indication: Sleep disorder
     Route: 048

REACTIONS (9)
  - Free fatty acids increased [Unknown]
  - Drug interaction [Unknown]
  - Cognitive disorder [Recovered/Resolved]
  - Dermatitis [Unknown]
  - Hepatic enzyme increased [Recovered/Resolved]
  - Asthenia [Unknown]
  - Obesity [Recovering/Resolving]
  - Off label use [Unknown]
  - Osteopenia [Unknown]

NARRATIVE: CASE EVENT DATE: 20180629
